FAERS Safety Report 8180914-X (Version None)
Quarter: 2012Q1

REPORT INFORMATION
  Report Type: 
  Country: None (occurrence: None)
  Receive Date: 20120302
  Receipt Date: 20120228
  Transmission Date: 20120608
  Serious: Yes (Death, Hospitalization)
  Sender: FDA-Public Use
  Company Number: MW-ABBOTT-11P-100-0873197-00

PATIENT
  Age: 42 Year
  Sex: Female
  Weight: 57 kg

DRUGS (6)
  1. LOPINAVIR/RITONAVIR [Suspect]
     Indication: HIV INFECTION
     Route: 048
     Dates: start: 20100806, end: 20120212
  2. ZIDOVUDINE [Concomitant]
     Indication: HIV INFECTION
     Dates: start: 20100806, end: 20111102
  3. COTRIM [Concomitant]
     Indication: PRODUCT USED FOR UNKNOWN INDICATION
     Dates: start: 20100623, end: 20120212
  4. TENOFOVIR [Concomitant]
     Indication: HIV INFECTION
     Dates: start: 20100806, end: 20120212
  5. LAMUVUDINE [Concomitant]
     Indication: HIV INFECTION
     Dates: start: 20100806, end: 20120212
  6. FLUCONAZOLE [Concomitant]
     Indication: PRODUCT USED FOR UNKNOWN INDICATION
     Dates: start: 20100623, end: 20120212

REACTIONS (2)
  - NEOPLASM MALIGNANT [None]
  - ANAEMIA [None]
